FAERS Safety Report 10013681 (Version 2)
Quarter: 2014Q1

REPORT INFORMATION
  Report Type: Spontaneous
  Country: US (occurrence: US)
  Receive Date: 20140315
  Receipt Date: 20140315
  Transmission Date: 20141002
  Serious: Yes (Disabling)
  Sender: FDA-Public Use
  Company Number: US-GE HEALTHCARE MEDICAL DIAGNOSTICS-OSCN-PR-0903S-0177

PATIENT
  Age: 68 Year
  Sex: Male

DRUGS (7)
  1. OMNISCAN [Suspect]
     Indication: PRODUCT USED FOR UNKNOWN INDICATION
     Route: 042
     Dates: start: 20030715, end: 20030715
  2. OMNISCAN [Suspect]
     Route: 042
     Dates: start: 20030918, end: 20030918
  3. OMNISCAN [Suspect]
     Route: 042
     Dates: start: 20040715, end: 20040715
  4. OMNISCAN [Suspect]
     Route: 042
     Dates: start: 20050728, end: 20050728
  5. OMNISCAN [Suspect]
     Route: 042
     Dates: start: 20061005, end: 20061005
  6. MAGNEVIST [Suspect]
     Indication: PRODUCT USED FOR UNKNOWN INDICATION
     Route: 042
     Dates: start: 20040409, end: 20040409
  7. OMNIPAQUE [Concomitant]
     Indication: MEDICAL DEVICE COMPLICATION
     Dates: start: 20040311, end: 20040311

REACTIONS (1)
  - Nephrogenic systemic fibrosis [Not Recovered/Not Resolved]
